FAERS Safety Report 10147026 (Version 2)
Quarter: 2014Q2

REPORT INFORMATION
  Report Type: Spontaneous
  Country: GB (occurrence: GB)
  Receive Date: 20140501
  Receipt Date: 20140516
  Transmission Date: 20141212
  Serious: Yes (Other)
  Sender: FDA-Public Use
  Company Number: GB-GLAXOSMITHKLINE-B0990264A

PATIENT
  Sex: Male
  Weight: 72 kg

DRUGS (4)
  1. OMACOR [Suspect]
     Indication: PRODUCT USED FOR UNKNOWN INDICATION
     Route: 048
  2. TAMSULOSIN [Concomitant]
  3. NAPROXEN [Concomitant]
  4. PARACETAMOL [Concomitant]

REACTIONS (4)
  - Intervertebral disc disorder [Unknown]
  - Surgery [Recovered/Resolved]
  - Dysphagia [Recovered/Resolved]
  - Post procedural complication [Recovered/Resolved]
